FAERS Safety Report 4813247-7 (Version None)
Quarter: 2005Q4

REPORT INFORMATION
  Report Type: 
  Country: None (occurrence: None)
  Receive Date: 20051028
  Receipt Date: 20050415
  Transmission Date: 20060501
  Serious: No
  Sender: FDA-Public Use
  Company Number: US-GLAXOSMITHKLINE-A0554400A

PATIENT
  Age: 34 Year
  Sex: Female

DRUGS (2)
  1. ADVAIR DISKUS 100/50 [Suspect]
     Indication: BRONCHITIS
     Route: 055
     Dates: start: 20050412
  2. NO CONCURRENT MEDICATION [Concomitant]

REACTIONS (5)
  - DIZZINESS [None]
  - EYE PAIN [None]
  - OCULAR HYPERAEMIA [None]
  - PALPITATIONS [None]
  - VISION BLURRED [None]
